FAERS Safety Report 15986989 (Version 1)
Quarter: 2019Q1

REPORT INFORMATION
  Report Type: Spontaneous
  Country: CA (occurrence: CA)
  Receive Date: 20190220
  Receipt Date: 20190220
  Transmission Date: 20190418
  Serious: Yes (Death)
  Sender: FDA-Public Use
  Company Number: CA-PFIZER INC-2019071121

PATIENT
  Age: 14 Year
  Sex: Male

DRUGS (16)
  1. FLUOXETINE [Concomitant]
     Active Substance: FLUOXETINE HYDROCHLORIDE
     Dosage: 20 MG, 1 CAPSULE
     Route: 048
  2. TOBI [Concomitant]
     Active Substance: TOBRAMYCIN
     Dosage: 4 DF, 2X/DAY
  3. ZINC. [Concomitant]
     Active Substance: ZINC
     Dosage: 10 MG, 2X/DAY TABLET
     Route: 048
  4. SALBUTAMOL [Concomitant]
     Active Substance: ALBUTEROL
     Dosage: 2 PUFFS PRIOR TO TREATMENT, 2 PUFFS AT 8 AM AND 4 PUFFS AT 8 PM
  5. PREDNISONE. [Concomitant]
     Active Substance: PREDNISONE
     Dosage: 50 MG, TABLET EVERY OTHER DAY WITH 4X5 MG = 70 MG
     Route: 048
  6. GABAPENTIN. [Concomitant]
     Active Substance: GABAPENTIN
     Dosage: 300 MG, 3X/DAY
     Route: 048
  7. RANITIDINE. [Concomitant]
     Active Substance: RANITIDINE
     Dosage: 150 MG, 2X/DAY
     Route: 048
  8. LANSOPRAZOLE TEVA [Concomitant]
     Active Substance: LANSOPRAZOLE
     Dosage: 30 MG (2 CAPSULES), 2X/DAY
     Route: 048
  9. GENOTROPIN GOQUICK [Suspect]
     Active Substance: SOMATROPIN
     Indication: GROWTH RETARDATION
     Dosage: 1.8 MG, 1X/DAY, 6 DAYS A WEEK
     Route: 058
     Dates: start: 2018
  10. GABAPENTIN. [Suspect]
     Active Substance: GABAPENTIN
     Dosage: 300 MG, TID (3X/DAY) WITH 600 MG (TOTAL DOSE OF 900 MG)
     Route: 048
  11. COLCHICINE. [Concomitant]
     Active Substance: COLCHICINE
     Dosage: 0.6 MG, 0.75 OF A TABLET, 1X/DAY
     Route: 048
  12. ONDANSETRON. [Concomitant]
     Active Substance: ONDANSETRON
     Dosage: 4 MG, (0. 5-0.75 TABLET BY EVERY 8 HOURS WHEN NEEDED)
     Route: 048
  13. AZITHROMYCIN ANHYDROUS. [Concomitant]
     Active Substance: AZITHROMYCIN ANHYDROUS
     Dosage: 250 MG TABLET EVERY TUESDAYS, THURSDAYS AND SATURDAYS AT BEDTIME
     Route: 048
  14. BUSCOPAN [Concomitant]
     Active Substance: BUTYLSCOPOLAMINE BROMIDE
     Dosage: 10 MG, 2X/DAY WHEN NEEDED
     Route: 048
  15. APO-PREDNISONE [Concomitant]
     Active Substance: PREDNISONE
     Dosage: 5 MG 4 DF, EVERY 48 HOURS
     Route: 048
  16. SULFATRIM [Concomitant]
     Active Substance: SULFAMETHOXAZOLE\TRIMETHOPRIM
     Dosage: 800/160 MG TABLET  MONDAY, WEDNESDAY AND FRIDAY
     Route: 048

REACTIONS (1)
  - Pneumonia [Fatal]

NARRATIVE: CASE EVENT DATE: 201811
